FAERS Safety Report 8348157-4 (Version None)
Quarter: 2012Q2

REPORT INFORMATION
  Report Type: 
  Country: None (occurrence: None)
  Receive Date: 20120507
  Receipt Date: 20120423
  Transmission Date: 20120825
  Serious: Yes (Other)
  Sender: FDA-Public Use
  Company Number: ADR-2009-07232

PATIENT
  Age: 53 Year
  Sex: Female

DRUGS (4)
  1. IBRUPROFEN [Concomitant]
  2. MYONAL [Concomitant]
  3. CRAVAT [Concomitant]
  4. BACLOFEN [Suspect]
     Indication: MUSCLE SPASTICITY
     Dosage: 400 MCG, DAILY, INTRATH
     Route: 037
     Dates: start: 20070928

REACTIONS (10)
  - MUSCULAR WEAKNESS [None]
  - DEVICE BREAKAGE [None]
  - ACTIVITIES OF DAILY LIVING IMPAIRED [None]
  - MUSCLE SPASTICITY [None]
  - TREMOR [None]
  - MUSCLE SPASMS [None]
  - DYSKINESIA [None]
  - CONDITION AGGRAVATED [None]
  - DRUG INEFFECTIVE [None]
  - DEVICE OCCLUSION [None]
